FAERS Safety Report 12990432 (Version 2)
Quarter: 2016Q4

REPORT INFORMATION
  Report Type: Report from Study
  Country: AU (occurrence: AU)
  Receive Date: 20161201
  Receipt Date: 20161220
  Transmission Date: 20170207
  Serious: Yes (Hospitalization)
  Sender: FDA-Public Use
  Company Number: AU-REGENERON PHARMACEUTICALS, INC.-2016-24376

PATIENT

DRUGS (2)
  1. EYLEA [Suspect]
     Active Substance: AFLIBERCEPT
     Dosage: 2 MG, 11-12 WEEKS, TOTAL NUMBER OF DOSES RECEIVED UNSPECIFIED
     Route: 031
     Dates: start: 201610, end: 201610
  2. EYLEA [Suspect]
     Active Substance: AFLIBERCEPT
     Indication: NEOVASCULAR AGE-RELATED MACULAR DEGENERATION
     Dosage: 2 MG, 11-12 WEEKS, TOTAL NUMBER OF DOSES RECEIVED UNSPECIFIED
     Route: 031
     Dates: start: 20150122

REACTIONS (2)
  - Blood sodium decreased [Unknown]
  - Gastrointestinal disorder [Unknown]

NARRATIVE: CASE EVENT DATE: 201611
